FAERS Safety Report 5978578-6 (Version None)
Quarter: 2008Q4

REPORT INFORMATION
  Report Type: 
  Country: None (occurrence: None)
  Receive Date: 20081204
  Receipt Date: 20081203
  Transmission Date: 20090506
  Serious: Yes (Death, Hospitalization)
  Sender: FDA-Public Use
  Company Number: A0759161A

PATIENT
  Age: 61 Year
  Sex: Female
  Weight: 130 kg

DRUGS (1)
  1. SERETIDE [Suspect]
     Indication: DRUG USE FOR UNKNOWN INDICATION
     Route: 055
     Dates: start: 20080401, end: 20081017

REACTIONS (2)
  - DEATH [None]
  - MOUTH ULCERATION [None]
